FAERS Safety Report 9256067 (Version 1)
Quarter: 2013Q2

REPORT INFORMATION
  Report Type: Spontaneous
  Country: US (occurrence: US)
  Receive Date: 20130425
  Receipt Date: 20130425
  Transmission Date: 20140414
  Serious: No
  Sender: FDA-Public Use
  Company Number: US-AMGEN-USASP2012015935

PATIENT
  Sex: Female

DRUGS (3)
  1. NEULASTA [Suspect]
     Indication: NEUTROPENIA
     Dosage: 6 MG, Q2WK
     Dates: start: 20120210
  2. XGEVA [Suspect]
     Indication: METASTASES TO BONE
     Dosage: 120 MG, Q6WK
     Dates: start: 20120209
  3. TAXOL [Concomitant]
     Dosage: UNK

REACTIONS (2)
  - Neuropathy peripheral [Recovering/Resolving]
  - Bone pain [Recovering/Resolving]
